FAERS Safety Report 26162521 (Version 2)
Quarter: 2025Q4

REPORT INFORMATION
  Report Type: Spontaneous
  Country: TR (occurrence: TR)
  Receive Date: 20251216
  Receipt Date: 20251219
  Transmission Date: 20260118
  Serious: Yes (Other)
  Sender: MERCK KGAA
  Company Number: TR-Merck Healthcare KGaA-2025063488

PATIENT
  Age: 34 Year
  Sex: Female

DRUGS (1)
  1. GONAL-F [Suspect]
     Active Substance: FOLLITROPIN
     Indication: In vitro fertilisation

REACTIONS (3)
  - Loss of consciousness [Unknown]
  - Myocardial infarction [Recovered/Resolved]
  - Hepatic function abnormal [Unknown]
